FAERS Safety Report 4712851-4 (Version None)
Quarter: 2005Q3

REPORT INFORMATION
  Report Type: 
  Country: None (occurrence: None)
  Receive Date: 20050712
  Receipt Date: 20050712
  Transmission Date: 20060218
  Serious: Yes (Hospitalization)
  Sender: FDA-Public Use
  Company Number: None

PATIENT
  Sex: Male

DRUGS (21)
  1. GATIFLOXACIN [Suspect]
     Indication: URINARY TRACT INFECTION
     Dosage: 400 MG DAILY ORAL
     Route: 048
     Dates: start: 20050317, end: 20050320
  2. APAP TAB [Concomitant]
  3. ACETYLCYSTEINE [Concomitant]
  4. ALBUTEROL [Concomitant]
  5. ASPIRIN [Concomitant]
  6. BUSPIRONE [Concomitant]
  7. CLONAZEPAM [Concomitant]
  8. CLOPIDOGREL BISULFATE [Concomitant]
  9. FLUVASTATIN [Concomitant]
  10. FUROSEMIDE [Concomitant]
  11. MUCINEX [Concomitant]
  12. HEPARIN [Concomitant]
  13. IPRATROPIUM BROMIDE [Concomitant]
  14. LEVOTHYROXINE [Concomitant]
  15. LORATADINE [Concomitant]
  16. MULTI-VITAMINS [Concomitant]
  17. OMEPRAZOLE [Concomitant]
  18. PILOCARPINE [Concomitant]
  19. SERTRALINE [Concomitant]
  20. TRAZODONE HCL [Concomitant]
  21. METOPROLOL [Concomitant]

REACTIONS (1)
  - CLOSTRIDIUM COLITIS [None]
